FAERS Safety Report 6578649 (Version 2)
Quarter: 2014Q2

REPORT INFORMATION
  Report Type: Report from Study
  Country: ES (occurrence: ES)
  Receive Date: 20080311
  Receipt Date: 20140522
  Transmission Date: 20141212
  Serious: Yes (Death)
  Sender: FDA-Public Use
  Company Number: ES-PFIZER INC-2008018743

PATIENT
  Age: 69 Year
  Sex: Female

DRUGS (5)
  1. NEURONTIN [Suspect]
     Indication: PAIN
     Dosage: 400 MG, 1X/DAY
     Route: 048
     Dates: start: 200710, end: 20071231
  2. ORFIDAL [Suspect]
     Indication: INSOMNIA
     Dosage: 1 MG, 1X/DAY
     Route: 048
     Dates: start: 200710, end: 20071231
  3. FRENADOL [Suspect]
     Indication: INFLUENZA LIKE ILLNESS
     Dosage: 1 DF, 3X/DAY
     Route: 048
     Dates: start: 20071226, end: 20071231
  4. ENALAPRIL [Concomitant]
     Indication: HYPERTENSION
     Route: 048
     Dates: start: 1996, end: 20071231
  5. PARACETAMOL [Concomitant]
     Indication: PAIN
     Dosage: 1 G, 1X/DAY
     Route: 048
     Dates: start: 200706, end: 20071231

REACTIONS (2)
  - Hyponatraemia [Fatal]
  - Disorientation [Fatal]
